FAERS Safety Report 8354089 (Version 4)
Quarter: 2013Q2

REPORT INFORMATION
  Report Type: Spontaneous
  Country: US (occurrence: US)
  Receive Date: 20120125
  Receipt Date: 20130621
  Transmission Date: 20140414
  Serious: Yes (Hospitalization, Other)
  Sender: FDA-Public Use
  Company Number: US-ROCHE-1032820

PATIENT
  Sex: Female

DRUGS (1)
  1. ACCUTANE [Suspect]
     Indication: PRODUCT USED FOR UNKNOWN INDICATION
     Route: 065
     Dates: start: 199606, end: 199612

REACTIONS (5)
  - Colitis ulcerative [Unknown]
  - Injury [Unknown]
  - Proctitis ulcerative [Unknown]
  - Depression [Unknown]
  - Crohn^s disease [Unknown]
